FAERS Safety Report 5268368-4 (Version None)
Quarter: 2007Q1

REPORT INFORMATION
  Report Type: 
  Country: None (occurrence: None)
  Receive Date: 20070314
  Receipt Date: 20070314
  Transmission Date: 20070707
  Serious: Yes (Other)
  Sender: FDA-Public Use
  Company Number: None

PATIENT
  Sex: Female

DRUGS (1)
  1. BIOWELL MAXXIMA FOUR [Suspect]
     Dates: start: 20070218, end: 20070219

REACTIONS (5)
  - DEHYDRATION [None]
  - DIZZINESS [None]
  - KIDNEY INFECTION [None]
  - LOSS OF CONSCIOUSNESS [None]
  - MALAISE [None]
